FAERS Safety Report 4811712-X (Version None)
Quarter: 2005Q4

REPORT INFORMATION
  Report Type: 
  Country: None (occurrence: None)
  Receive Date: 20051025
  Receipt Date: 20051013
  Transmission Date: 20060501
  Serious: Yes (Hospitalization)
  Sender: FDA-Public Use
  Company Number: 2005141878

PATIENT
  Age: 68 Year
  Sex: Male

DRUGS (7)
  1. ATARAX [Suspect]
     Indication: ILL-DEFINED DISORDER
     Dosage: 25 MG, ORAL
     Route: 048
     Dates: start: 20050315
  2. KARDEGIC (ACETYLSALICYLATE LYSINE) [Suspect]
     Indication: ILL-DEFINED DISORDER
     Dosage: 160 MG ORAL
     Route: 048
     Dates: start: 20050415, end: 20050829
  3. NEXIUM [Suspect]
     Indication: ILL-DEFINED DISORDER
     Dosage: 40 MG, ORAL
     Route: 047
     Dates: start: 20050701, end: 20050829
  4. COZAAR [Concomitant]
  5. NICARDIPINE HCL [Concomitant]
  6. DEPAKENE [Concomitant]
  7. CLONAZEPAM [Concomitant]

REACTIONS (10)
  - AGITATION [None]
  - APLASTIC ANAEMIA [None]
  - BICYTOPENIA [None]
  - BRONCHITIS [None]
  - CONDITION AGGRAVATED [None]
  - DRUG TOXICITY [None]
  - FALL [None]
  - NORMOCHROMIC NORMOCYTIC ANAEMIA [None]
  - SUPERINFECTION LUNG [None]
  - THROMBOCYTOPENIA [None]
